FAERS Safety Report 9203821 (Version 2)
Quarter: 2013Q4

REPORT INFORMATION
  Report Type: Spontaneous
  Country: GB (occurrence: GB)
  Receive Date: 20130402
  Receipt Date: 20131004
  Transmission Date: 20140711
  Serious: Yes (Hospitalization, Other)
  Sender: FDA-Public Use
  Company Number: GB-PFIZER INC-2013101672

PATIENT
  Age: 83 Year
  Sex: Female

DRUGS (11)
  1. AMLODIPINE BESILATE [Suspect]
     Dosage: 5 MG, DAILY
     Route: 065
  2. DOXAZOSIN MESILATE [Suspect]
     Dosage: 1 MG, UNK
     Route: 065
     Dates: start: 200710
  3. DOXAZOSIN MESILATE [Suspect]
     Dosage: 8 MG, DAILY
     Route: 065
  4. FUROSEMIDE [Suspect]
     Dosage: 80 MG, DAILY
     Route: 065
  5. BISOPROLOL FUMARATE [Suspect]
     Dosage: 5 MG, DAILY
     Route: 065
  6. CITALOPRAM [Suspect]
     Indication: DEPRESSION
     Dosage: 20 MG, DAILY
     Route: 065
     Dates: start: 201207
  7. ATENOLOL [Suspect]
     Indication: HYPERTENSION
     Dosage: 25 MG, UNK
     Route: 048
  8. ATENOLOL [Suspect]
     Dosage: 50 MG, UNK
     Route: 048
     Dates: start: 201209
  9. ASPIRIN [Suspect]
     Dosage: 75 MG, DAILY
     Route: 048
  10. TELMISARTAN [Suspect]
     Dosage: 2 MG, UNK
     Route: 065
     Dates: start: 200710
  11. TELMISARTAN [Suspect]
     Dosage: 80 MG, DAILY
     Route: 065

REACTIONS (9)
  - Dyspnoea [Unknown]
  - Fluid overload [Unknown]
  - Pulmonary congestion [Unknown]
  - Weight loss poor [Unknown]
  - Blood cholesterol increased [Unknown]
  - Low density lipoprotein increased [Unknown]
  - Oedema [Unknown]
  - Depression [Unknown]
  - Drug ineffective [Unknown]
